FAERS Safety Report 8915548 (Version 1)
Quarter: 2012Q4

REPORT INFORMATION
  Report Type: 
  Country: AT (occurrence: AT)
  Receive Date: 20121119
  Receipt Date: 20121119
  Transmission Date: 20130627
  Serious: Yes (Other)
  Sender: FDA-Public Use
  Company Number: AT-JNJFOC-20121105036

PATIENT
  Age: 12 Year
  Sex: Female

DRUGS (6)
  1. INFLIXIMAB, RECOMBINANT [Suspect]
     Indication: POLYARTERITIS NODOSA
     Route: 042
     Dates: start: 20121112
  2. INFLIXIMAB, RECOMBINANT [Suspect]
     Indication: VASCULITIS
     Route: 042
     Dates: start: 20121112
  3. CELLCEPT [Concomitant]
     Route: 065
  4. DAPSON [Concomitant]
     Route: 065
  5. COLCHICINE [Concomitant]
     Indication: FAMILIAL MEDITERRANEAN FEVER
     Route: 065
  6. METHYLPREDNISOLON [Concomitant]
     Route: 065

REACTIONS (2)
  - Off label use [Unknown]
  - Vasculitis [Unknown]
